FAERS Safety Report 14061936 (Version 1)
Quarter: 2017Q4

REPORT INFORMATION
  Report Type: Not Available
  Country: None (occurrence: US)
  Receive Date: 20171009
  Receipt Date: 20171009
  Transmission Date: 20180321
  Serious: No
  Sender: FDA-Public Use
  Company Number: US-AKORN- 2897

PATIENT

DRUGS (1)
  1. DORZOLAMIDE HCL OPTHALMIC SOUTION [Suspect]
     Active Substance: DORZOLAMIDE HYDROCHLORIDE

REACTIONS (1)
  - Drug ineffective [None]
